FAERS Safety Report 6167084-4 (Version None)
Quarter: 2009Q2

REPORT INFORMATION
  Report Type: 
  Country: None (occurrence: None)
  Receive Date: 20090424
  Receipt Date: 20090413
  Transmission Date: 20091009
  Serious: Yes (Other)
  Sender: FDA-Public Use
  Company Number: US-PFIZER INC-2009201208

PATIENT
  Sex: Female
  Weight: 90.264 kg

DRUGS (8)
  1. CHANTIX [Suspect]
     Indication: SMOKING CESSATION THERAPY
     Dosage: 0.5 MG, 2X/DAY
     Dates: start: 20090405, end: 20090410
  2. MOBIC [Concomitant]
     Dosage: UNK
  3. LYRICA [Concomitant]
     Dosage: UNK
  4. AXID [Concomitant]
     Dosage: UNK
  5. CYMBALTA [Concomitant]
     Dosage: UNK
  6. CRESTOR [Concomitant]
     Dosage: UNK
  7. HYDROCODONE [Concomitant]
     Dosage: 10-325 MG, UNK
  8. ATIVAN [Concomitant]
     Dosage: UNK

REACTIONS (2)
  - CHOKING [None]
  - LOSS OF CONSCIOUSNESS [None]
